FAERS Safety Report 7992307-6 (Version None)
Quarter: 2011Q4

REPORT INFORMATION
  Report Type: 
  Country: None (occurrence: None)
  Receive Date: 20111219
  Receipt Date: 20110627
  Transmission Date: 20120403
  Serious: No
  Sender: FDA-Public Use
  Company Number: US-ASTRAZENECA-2010SE58794

PATIENT
  Age: 80 Year
  Sex: Female

DRUGS (3)
  1. CRESTOR [Suspect]
     Route: 048
  2. ALBUTEROL [Concomitant]
  3. SYMBICORT [Suspect]
     Route: 055

REACTIONS (4)
  - DYSPNOEA [None]
  - MALAISE [None]
  - TREMOR [None]
  - NASOPHARYNGITIS [None]
